FAERS Safety Report 24000322 (Version 1)
Quarter: 2024Q2

REPORT INFORMATION
  Report Type: Spontaneous
  Country: CN (occurrence: CN)
  Receive Date: 20240621
  Receipt Date: 20240621
  Transmission Date: 20240716
  Serious: Yes (Other)
  Sender: FDA-Public Use
  Company Number: CN-FreseniusKabi-FK202409412

PATIENT
  Age: 54 Year
  Sex: Male
  Weight: 50 kg

DRUGS (18)
  1. OMEGAVEN [Suspect]
     Active Substance: FISH OIL
     Indication: Nutritional supplementation
     Dosage: ROUTE OF ADMIN: INTRAVENOUS DRIP?FORM OF ADMIN: INJECTION
     Route: 041
     Dates: start: 20240530, end: 20240602
  2. ELECTROLYTES NOS\MINERALS\SORBITOL [Suspect]
     Active Substance: ELECTROLYTES NOS\MINERALS\SORBITOL
     Indication: Pyloric stenosis
     Dosage: FORM OF ADMIN-INJECTION?ROUTE OF ADMIN: INTRAVENOUS DRIP
     Dates: start: 20240528, end: 20240602
  3. ERGOCALCIFEROL\PHYTONADIONE\RETINOL\TOCOPHEROL [Suspect]
     Active Substance: ERGOCALCIFEROL\PHYTONADIONE\RETINOL\TOCOPHEROL
     Indication: Nutritional supplementation
     Dosage: FORM OF ADMIN -INJECTION?ROUTE OF ADMIN: INTRAVENOUS DRIP
     Dates: start: 20240530, end: 20240602
  4. POTASSIUM CHLORIDE [Suspect]
     Active Substance: POTASSIUM CHLORIDE
     Indication: Nutritional supplementation
     Dosage: FOA-INJECTION
     Route: 041
     Dates: start: 20240528, end: 20240602
  5. ALANYL GLUTAMINE [Suspect]
     Active Substance: ALANYL GLUTAMINE
     Indication: Pyloric stenosis
     Dosage: FOA-INJECTION
     Route: 041
     Dates: start: 20240528, end: 20240602
  6. VITAMINS [Suspect]
     Active Substance: VITAMINS
     Indication: Nutritional supplementation
     Dosage: FOA-POWDER FOR INJECTION
     Route: 041
     Dates: start: 20240528, end: 20240602
  7. SODIUM CHLORIDE [Suspect]
     Active Substance: SODIUM CHLORIDE
     Indication: Fluid replacement
     Dosage: FOA-INJECTION
     Route: 041
     Dates: start: 20240528, end: 20240602
  8. AMINO ACIDS\DEXTROSE\ELECTROLYTES NOS\SOYBEAN OIL [Suspect]
     Active Substance: AMINO ACIDS\DEXTROSE\ELECTROLYTES NOS\SOYBEAN OIL
     Indication: Pyloric stenosis
     Dosage: FOA-INJECTION
     Route: 041
     Dates: start: 20240528, end: 20240602
  9. ESOMEPRAZOLE SODIUM [Suspect]
     Active Substance: ESOMEPRAZOLE SODIUM
     Indication: Pyloric stenosis
     Route: 042
     Dates: start: 20240528
  10. AMINO ACIDS [Concomitant]
     Active Substance: AMINO ACIDS
     Indication: Nutritional supplementation
     Dosage: FOA-INJECTION
     Route: 041
     Dates: start: 20240602, end: 20240604
  11. SODIUM CHLORIDE [Concomitant]
     Active Substance: SODIUM CHLORIDE
     Indication: Fluid replacement
     Dosage: FOA-INJECTION
     Route: 041
     Dates: start: 20240528, end: 20240602
  12. POTASSIUM CHLORIDE [Concomitant]
     Active Substance: POTASSIUM CHLORIDE
     Indication: Fluid replacement
     Dosage: FOA-INJECTION
     Route: 041
     Dates: start: 20240528, end: 20240602
  13. POTASSIUM CHLORIDE [Concomitant]
     Active Substance: POTASSIUM CHLORIDE
     Indication: Nutritional supplementation
  14. INSULIN NOS [Concomitant]
     Active Substance: INSULIN NOS
     Indication: Blood glucose abnormal
     Dosage: FOA-INJECTION
     Route: 041
     Dates: start: 20240603, end: 20240604
  15. DEXTROSE\SODIUM CHLORIDE [Concomitant]
     Active Substance: DEXTROSE\SODIUM CHLORIDE
     Indication: Fluid replacement
     Dosage: FOA-INJECTION
     Route: 041
     Dates: start: 20240528, end: 20240528
  16. DEXTROSE\SODIUM CHLORIDE [Concomitant]
     Active Substance: DEXTROSE\SODIUM CHLORIDE
     Indication: Nutritional supplementation
     Dosage: FOA-INJECTION
     Route: 041
     Dates: start: 20240529, end: 20240602
  17. DEXTROSE [Concomitant]
     Active Substance: DEXTROSE\DEXTROSE MONOHYDRATE
     Indication: Fluid replacement
     Dosage: FOA-INJECTION
     Route: 041
     Dates: start: 20240531, end: 20240602
  18. DEXTROSE [Concomitant]
     Active Substance: DEXTROSE\DEXTROSE MONOHYDRATE
     Indication: Nutritional supplementation
     Dosage: FOA-INJECTION
     Route: 041
     Dates: start: 20240603, end: 20240603

REACTIONS (1)
  - Gouty arthritis [Recovering/Resolving]

NARRATIVE: CASE EVENT DATE: 20240531
